FAERS Safety Report 21786185 (Version 2)
Quarter: 2023Q2

REPORT INFORMATION
  Report Type: Spontaneous
  Country: PT (occurrence: PT)
  Receive Date: 20221228
  Receipt Date: 20230616
  Transmission Date: 20230722
  Serious: Yes (Other)
  Sender: FDA-Public Use
  Company Number: PT-SUN PHARMACEUTICAL INDUSTRIES LTD-2022R1-370599

PATIENT
  Age: 38 Year
  Sex: Female

DRUGS (1)
  1. PALIPERIDONE [Suspect]
     Active Substance: PALIPERIDONE
     Indication: Acute psychosis
     Dosage: UNK
     Route: 065

REACTIONS (2)
  - Hyperprolactinaemia [Unknown]
  - Menstrual disorder [Unknown]
